FAERS Safety Report 20097689 (Version 4)
Quarter: 2022Q2

REPORT INFORMATION
  Report Type: Report from Study
  Country: US (occurrence: US)
  Receive Date: 20211122
  Receipt Date: 20220525
  Transmission Date: 20220721
  Serious: No
  Sender: FDA-Public Use
  Company Number: US-NOVARTISTESTPH-NVSC2021US266471

PATIENT
  Sex: Male

DRUGS (1)
  1. ENTRESTO [Suspect]
     Active Substance: SACUBITRIL\VALSARTAN
     Indication: Cardiomegaly
     Dosage: UNK UNK, BID
     Route: 048
     Dates: start: 2020

REACTIONS (8)
  - Pollakiuria [Unknown]
  - Cough [Not Recovered/Not Resolved]
  - Dizziness [Unknown]
  - Tonsillolith [Unknown]
  - Pharyngitis [Unknown]
  - Fatigue [Unknown]
  - Product use in unapproved indication [Unknown]
  - Product dose omission issue [Unknown]
